FAERS Safety Report 6005884-1 (Version None)
Quarter: 2008Q4

REPORT INFORMATION
  Report Type: 
  Country: None (occurrence: None)
  Receive Date: 20081216
  Receipt Date: 20081216
  Transmission Date: 20090506
  Serious: No
  Sender: FDA-Public Use
  Company Number: None

PATIENT
  Sex: Female
  Weight: 61.6892 kg

DRUGS (1)
  1. NORTRIPTYLINE HCL [Suspect]
     Indication: DEPRESSION
     Dosage: 20 DAILY ORAL
     Route: 048
     Dates: start: 20080901

REACTIONS (2)
  - NIGHTMARE [None]
  - PRODUCT QUALITY ISSUE [None]
